FAERS Safety Report 6702673-7 (Version None)
Quarter: 2010Q2

REPORT INFORMATION
  Report Type: 
  Country: None (occurrence: None)
  Receive Date: 20100429
  Receipt Date: 20100422
  Transmission Date: 20101027
  Serious: Yes (Hospitalization)
  Sender: FDA-Public Use
  Company Number: FR-KINGPHARMUSA00001-K201000490

PATIENT
  Age: 70 Year
  Sex: Male

DRUGS (9)
  1. ALTACE [Suspect]
     Indication: HYPERTENSION
     Dosage: 2.5 MG, QD
     Route: 048
     Dates: start: 20050101, end: 20090723
  2. BISO LICH [Suspect]
     Indication: CARDIAC FAILURE
     Dosage: 2.5 MG, QD
     Route: 048
     Dates: start: 20030101
  3. ACETYLSALICYLIC ACID [Suspect]
     Indication: CORONARY ARTERY DISEASE
     Dosage: 100 MG, QD
     Route: 048
     Dates: start: 20070101
  4. AQUAPHOR [Suspect]
     Indication: HYPERTENSION
     Dosage: 10 MG, QD
     Route: 048
     Dates: start: 20090620, end: 20090723
  5. CLEXANE [Suspect]
     Indication: CARDIAC PACEMAKER INSERTION
     Dosage: 80 MG, BID
     Route: 058
     Dates: start: 20090605, end: 20090723
  6. FURORESE [Suspect]
     Indication: OEDEMA PERIPHERAL
     Dosage: 250 MG, BID
     Route: 048
     Dates: start: 20090620, end: 20090723
  7. INSPRA [Suspect]
     Indication: CARDIAC FAILURE
     Dosage: 25 MG, QD
     Route: 048
     Dates: start: 20071101, end: 20090723
  8. DIGITOXIN [Concomitant]
     Dosage: UNK
     Dates: start: 20030101
  9. PHENPROCOUMON [Concomitant]
     Dosage: UNK
     Dates: start: 20071001, end: 20090601

REACTIONS (7)
  - DEHYDRATION [None]
  - HYPOTENSION [None]
  - HYPOVOLAEMIC SHOCK [None]
  - PNEUMONIA [None]
  - RENAL FAILURE ACUTE [None]
  - SHOCK HAEMORRHAGIC [None]
  - URETHRAL HAEMORRHAGE [None]
